FAERS Safety Report 8808664 (Version 3)
Quarter: 2013Q1

REPORT INFORMATION
  Report Type: Spontaneous
  Country: US (occurrence: None)
  Receive Date: 20120919
  Receipt Date: 20130213
  Transmission Date: 20140127
  Serious: Yes (Other)
  Sender: FDA-Public Use
  Company Number: AUR-APL-2012-03961

PATIENT
  Sex: Male
  Weight: 63.9 kg

DRUGS (4)
  1. CLOPIDOGREL [Suspect]
     Indication: ANTICOAGULANT THERAPY
  2. LASIX (FUROSEMIDE) [Concomitant]
  3. COREG (CARVEDILOL) [Concomitant]
  4. METFORMIN (METFORMIN) [Concomitant]

REACTIONS (3)
  - Myocardial infarction [None]
  - Thrombosis in device [None]
  - Renal disorder [None]
